FAERS Safety Report 9444322 (Version 1)
Quarter: 2013Q3

REPORT INFORMATION
  Report Type: Spontaneous
  Country: AU (occurrence: AU)
  Receive Date: 20130807
  Receipt Date: 20130807
  Transmission Date: 20140515
  Serious: Yes (Hospitalization, Other)
  Sender: FDA-Public Use
  Company Number: AU-AMGEN-AUSSP2013051304

PATIENT
  Age: 73 Year
  Sex: Female
  Weight: 67 kg

DRUGS (14)
  1. PROLIA [Suspect]
     Indication: OSTEOPOROSIS POSTMENOPAUSAL
     Dosage: 60 MG, Q6MO
     Route: 058
     Dates: start: 201306
  2. PROLIA [Suspect]
     Indication: FEMUR FRACTURE
  3. BICOR                              /00188902/ [Concomitant]
     Dosage: 5 MG, MANE
  4. CALCITRIOL [Concomitant]
     Dosage: 2 UNK, BID
  5. OSTELIN                            /00107901/ [Concomitant]
     Dosage: 3000 UNIT, MANE
  6. CRESTOR [Concomitant]
     Dosage: 10 MG, MANE
  7. DIAZEPAM [Concomitant]
     Dosage: 5 MG, QHS (NOCHTE)
  8. LASIX                              /00032601/ [Concomitant]
     Dosage: 40 MG, MANE AND MIDI
  9. NEXIUM                             /01479302/ [Concomitant]
     Dosage: 40 MG, MANE
  10. NITRO-DUR [Concomitant]
     Dosage: 10 MG, PATCH, QD
  11. PANADOL OSTEO [Concomitant]
     Dosage: 2 UNK, TID
  12. PRASUGREL [Concomitant]
     Dosage: 10 MG, MANE
  13. SALOFALK                           /00000301/ [Concomitant]
     Dosage: 1000 MG, TID
  14. TEVETEN                            /01347302/ [Concomitant]
     Dosage: 600 MG, MANE

REACTIONS (6)
  - Muscle spasms [Recovered/Resolved]
  - Muscle twitching [Unknown]
  - Paraesthesia [Unknown]
  - Electrocardiogram QT prolonged [Recovered/Resolved]
  - Trousseau^s sign [Recovered/Resolved]
  - Hypocalcaemia [Recovered/Resolved]
